FAERS Safety Report 25954225 (Version 1)
Quarter: 2025Q4

REPORT INFORMATION
  Report Type: Spontaneous
  Country: US (occurrence: US)
  Receive Date: 20251023
  Receipt Date: 20251023
  Transmission Date: 20260118
  Serious: No
  Sender: MERCK SHARP & DOHME LLC
  Company Number: US-009507513-2340956

PATIENT
  Age: 34 Year
  Sex: Female

DRUGS (1)
  1. BELZUTIFAN [Suspect]
     Active Substance: BELZUTIFAN
     Indication: Paraganglion neoplasm

REACTIONS (3)
  - Fatigue [Unknown]
  - Weight increased [Unknown]
  - Off label use [Unknown]
